FAERS Safety Report 11100778 (Version 1)
Quarter: 2015Q2

REPORT INFORMATION
  Report Type: Spontaneous
  Country: US (occurrence: US)
  Receive Date: 20150508
  Receipt Date: 20150508
  Transmission Date: 20150821
  Serious: Yes (Other)
  Sender: FDA-Public Use
  Company Number: US-JNJFOC-20150213842

PATIENT
  Sex: Female
  Weight: 63.5 kg

DRUGS (1)
  1. VERMOX [Suspect]
     Active Substance: MEBENDAZOLE
     Indication: HOOKWORM INFECTION
     Route: 065
     Dates: start: 201104

REACTIONS (11)
  - Bedridden [Not Recovered/Not Resolved]
  - Skin disorder [Not Recovered/Not Resolved]
  - Pain [Not Recovered/Not Resolved]
  - Headache [Not Recovered/Not Resolved]
  - Acarodermatitis [Recovered/Resolved]
  - Skin discolouration [Not Recovered/Not Resolved]
  - Vomiting [Not Recovered/Not Resolved]
  - Malaise [Not Recovered/Not Resolved]
  - Nausea [Not Recovered/Not Resolved]
  - Skin infection [Not Recovered/Not Resolved]
  - Zygomycosis [Not Recovered/Not Resolved]

NARRATIVE: CASE EVENT DATE: 2011
